FAERS Safety Report 23959721 (Version 2)
Quarter: 2024Q3

REPORT INFORMATION
  Report Type: Other
  Country: AU (occurrence: AU)
  Receive Date: 20240611
  Receipt Date: 20240805
  Transmission Date: 20241016
  Serious: Yes (Hospitalization, Other)
  Sender: LUPIN
  Company Number: AU-LUPIN PHARMACEUTICALS INC.-2024-04718

PATIENT
  Sex: Male

DRUGS (19)
  1. ATORVASTATIN [Suspect]
     Active Substance: ATORVASTATIN
     Indication: Product used for unknown indication
     Dosage: 20 MILLIGRAM, QD, 1 TABLET IN THE MORNING
     Route: 048
  2. LEVOTHYROXINE [Suspect]
     Active Substance: LEVOTHYROXINE\LEVOTHYROXINE SODIUM
     Indication: Product used for unknown indication
     Dosage: UNK
     Route: 065
  3. ROSUVASTATIN CALCIUM [Suspect]
     Active Substance: ROSUVASTATIN CALCIUM
     Indication: Product used for unknown indication
     Dosage: 10 MILLIGRAM, FILM-COATED TABLET
     Route: 048
  4. ASPIRIN [Suspect]
     Active Substance: ASPIRIN
     Indication: Product used for unknown indication
     Dosage: 100 MILLIGRAM, QD, ENTERIC-COATED TABLET, IN THE MORNING WITH FOOD, SWALLOW WHOLE, DO NOT CRUSH OR C
     Route: 048
  5. ESCITALOPRAM [Suspect]
     Active Substance: ESCITALOPRAM OXALATE
     Indication: Product used for unknown indication
     Dosage: UNK
     Route: 065
  6. LEXAPRO [Suspect]
     Active Substance: ESCITALOPRAM OXALATE
     Indication: Product used for unknown indication
     Dosage: 20 MILLIGRAM, QD, 1 DOSAGE FORM IN THE MORNING
     Route: 048
  7. THYROXINE [Suspect]
     Active Substance: LEVOTHYROXINE
     Indication: Product used for unknown indication
     Dosage: 0.1 MILLIGRAM, 1 TABLET, FIVE TIMES A WEEK (MONDAY TO FRIDAY)
     Route: 048
  8. THYROXINE [Suspect]
     Active Substance: LEVOTHYROXINE
     Dosage: 0.075 MILLIGRAM, BIW, TWICE A WEEK (1 TABLET, ON SATURDAY AND SUNDAY FOR ORAL USE (REFRIGERATE DO NO
     Route: 048
  9. THYROXINE [Suspect]
     Active Substance: LEVOTHYROXINE
     Dosage: 0.15 MILLIGRAM, QW
     Route: 048
  10. ALLOPURINOL [Suspect]
     Active Substance: ALLOPURINOL
     Indication: Product used for unknown indication
     Dosage: 100 MILLIGRAM, QD, 2 TABLETS IN THE MORNING WITH FOOD
     Route: 048
  11. ALLOPURINOL [Suspect]
     Active Substance: ALLOPURINOL
     Dosage: 300 MILLIGRAM, QD, 1 TABLET AT NIGHT
     Route: 048
  12. OLANZAPINE [Suspect]
     Active Substance: OLANZAPINE
     Indication: Product used for unknown indication
     Dosage: 5 MILLIGRAM, QD, IN THE MORNING 8 AM (10 MG TABLET)
     Route: 048
  13. OLANZAPINE [Suspect]
     Active Substance: OLANZAPINE
     Dosage: 5 MILLIGRAM, QD, AT 5 PM (10 MG TABLET)
     Route: 048
  14. OLANZAPINE [Suspect]
     Active Substance: OLANZAPINE
     Dosage: 25 MILLIGRAM, QD, IN NIGHT AT 8 PM (10 MG TABLET)
     Route: 048
  15. OLANZAPINE [Suspect]
     Active Substance: OLANZAPINE
     Dosage: 5 MILLIGRAM, QD, IN THE MORNING AT 8 AM (5 MG TABLET)
     Route: 048
  16. OLANZAPINE [Suspect]
     Active Substance: OLANZAPINE
     Dosage: 5 MILLIGRAM, QD, AT 5 PM (5 MG TABLET)
     Route: 048
  17. OLANZAPINE [Suspect]
     Active Substance: OLANZAPINE
     Dosage: 25 MILLIGRAM, QD, IN NIGHT AT 8 PM (5 MG TABLET)
     Route: 048
  18. RABEPRAZOLE SODIUM [Suspect]
     Active Substance: RABEPRAZOLE SODIUM
     Indication: Product used for unknown indication
     Dosage: 20 MILLIGRAM, QD, IN THE MORNING
     Route: 048
  19. VALPROATE SODIUM [Suspect]
     Active Substance: VALPROATE SODIUM
     Indication: Product used for unknown indication
     Dosage: 1200 MILLIGRAM, BID, SWALLOW WHOLE, DO NOT CUT OR CRUSH OR CHEW TABLET
     Route: 048

REACTIONS (9)
  - Anxiety [Unknown]
  - Chest pain [Recovered/Resolved]
  - Dyspnoea [Unknown]
  - Leukocyte adhesion deficiency [Unknown]
  - Palpitations [Unknown]
  - Stenosis [Unknown]
  - Tachycardia [Unknown]
  - Thrombocytopenia [Unknown]
  - Troponin increased [Not Recovered/Not Resolved]

NARRATIVE: CASE EVENT DATE: 20211101
